FAERS Safety Report 24996520 (Version 2)
Quarter: 2025Q1

REPORT INFORMATION
  Report Type: Report from Study
  Country: US (occurrence: US)
  Receive Date: 20250221
  Receipt Date: 20250321
  Transmission Date: 20250409
  Serious: Yes (Hospitalization, Other)
  Sender: ALEXION PHARMACEUTICALS
  Company Number: US-AstraZeneca-CH-00807338A

PATIENT

DRUGS (2)
  1. ULTOMIRIS [Suspect]
     Active Substance: RAVULIZUMAB-CWVZ
     Indication: Myasthenia gravis
  2. OCTAGAM IMMUNE GLOBULIN (HUMAN) [Concomitant]
     Active Substance: HUMAN IMMUNOGLOBULIN G
     Route: 065

REACTIONS (9)
  - Myasthenia gravis [Unknown]
  - Atrial fibrillation [Unknown]
  - Bradycardia [Unknown]
  - Pericardial effusion [Unknown]
  - Pleural effusion [Unknown]
  - Ventricular extrasystoles [Unknown]
  - Atelectasis [Unknown]
  - Palpitations [Unknown]
  - Asthenia [Unknown]
